FAERS Safety Report 7376043-5 (Version None)
Quarter: 2011Q1

REPORT INFORMATION
  Report Type: 
  Country: None (occurrence: None)
  Receive Date: 20110325
  Receipt Date: 20110311
  Transmission Date: 20110831
  Serious: Yes (Hospitalization)
  Sender: FDA-Public Use
  Company Number: JP-MERCK-1103USA02878

PATIENT
  Age: 78 Year
  Sex: Male

DRUGS (3)
  1. GOSHA-JINKI-GAN [Concomitant]
     Route: 048
  2. TAKEPRON [Concomitant]
     Route: 048
  3. JANUVIA [Suspect]
     Route: 048
     Dates: start: 20110224

REACTIONS (1)
  - INTERSTITIAL LUNG DISEASE [None]
